FAERS Safety Report 4721955-1 (Version None)
Quarter: 2005Q3

REPORT INFORMATION
  Report Type: 
  Country: None (occurrence: None)
  Receive Date: 20050722
  Receipt Date: 20050405
  Transmission Date: 20060218
  Serious: Yes (Other)
  Sender: FDA-Public Use
  Company Number: US-AMGEN-US125285

PATIENT

DRUGS (8)
  1. ENBREL [Suspect]
     Indication: DRUG USE FOR UNKNOWN INDICATION
  2. NAPROSYN [Concomitant]
  3. PREDNISONE [Concomitant]
  4. NSAID [Concomitant]
  5. ADVAIR DISKUS 100/50 [Concomitant]
  6. SINGULAIR [Concomitant]
  7. SPIRIVA [Concomitant]
  8. ANTIHYPERTENSIVE MEDICATION NOS [Concomitant]

REACTIONS (2)
  - ASPERGILLOSIS [None]
  - CHRONIC OBSTRUCTIVE PULMONARY DISEASE [None]
